FAERS Safety Report 7629037-6 (Version None)
Quarter: 2011Q3

REPORT INFORMATION
  Report Type: 
  Country: None (occurrence: None)
  Receive Date: 20110722
  Receipt Date: 20101022
  Transmission Date: 20111222
  Serious: No
  Sender: FDA-Public Use
  Company Number: US-MYLANLABS-2010S1017360

PATIENT
  Age: 71 Year
  Sex: Male
  Weight: 68.04 kg

DRUGS (3)
  1. ONDANSETRON HYDROCHLORIDE [Suspect]
     Indication: NAUSEA
     Route: 048
     Dates: start: 20100908, end: 20100909
  2. LISINOPRIL [Concomitant]
  3. ROXICET [Concomitant]
     Indication: PAIN

REACTIONS (3)
  - DRUG INEFFECTIVE [None]
  - VOMITING [None]
  - NAUSEA [None]
